FAERS Safety Report 4356014-3 (Version None)
Quarter: 2004Q2

REPORT INFORMATION
  Report Type: 
  Country: None (occurrence: None)
  Receive Date: 20040505
  Receipt Date: 20040419
  Transmission Date: 20050107
  Serious: Yes (Other)
  Sender: FDA-Public Use
  Company Number: A0507737A

PATIENT
  Age: 66 Year
  Sex: Female

DRUGS (5)
  1. NICORETTE [Suspect]
     Indication: EX-SMOKER
     Dosage: 2 MG/TRANSBUCCAL
     Dates: start: 20040101, end: 20040101
  2. THYROID MEDICATION [Concomitant]
  3. ALPRAZOLAM [Concomitant]
  4. VITAMIN [Concomitant]
  5. ASPIRIN [Concomitant]

REACTIONS (2)
  - GINGIVAL PAIN [None]
  - TOOTH INJURY [None]
